FAERS Safety Report 8258291-5 (Version None)
Quarter: 2012Q2

REPORT INFORMATION
  Report Type: 
  Country: None (occurrence: None)
  Receive Date: 20120404
  Receipt Date: 20120327
  Transmission Date: 20120825
  Serious: Yes (Hospitalization)
  Sender: FDA-Public Use
  Company Number: DE-UCBSA-054197

PATIENT
  Sex: Male

DRUGS (2)
  1. VIMPAT [Suspect]
     Dosage: FOR 3 MONTHS
  2. DIURETICS [Concomitant]
     Dosage: UNKNOWN DOSE

REACTIONS (1)
  - RENAL FAILURE [None]
